FAERS Safety Report 18316490 (Version 2)
Quarter: 2020Q3

REPORT INFORMATION
  Report Type: Spontaneous
  Country: ID (occurrence: ID)
  Receive Date: 20200927
  Receipt Date: 20200929
  Transmission Date: 20201103
  Serious: Yes (Other)
  Sender: FDA-Public Use
  Company Number: ID-ROCHE-2672027

PATIENT
  Sex: Female
  Weight: 49 kg

DRUGS (1)
  1. AVASTIN [Suspect]
     Active Substance: BEVACIZUMAB
     Indication: CERVIX CARCINOMA
     Route: 065
     Dates: start: 20200821

REACTIONS (2)
  - Kidney enlargement [Unknown]
  - Stent placement [Unknown]
